FAERS Safety Report 10641983 (Version 1)
Quarter: 2014Q4

REPORT INFORMATION
  Report Type: Spontaneous
  Country: GB (occurrence: GB)
  Receive Date: 20141209
  Receipt Date: 20141209
  Transmission Date: 20150529
  Serious: Yes (Hospitalization)
  Sender: FDA-Public Use
  Company Number: GB-AMGEN-GBRSP2014095453

PATIENT
  Age: 50 Year
  Sex: Female

DRUGS (5)
  1. CAPECITABINE. [Suspect]
     Active Substance: CAPECITABINE
     Indication: BREAST CANCER
     Dosage: LAST DOSE OF MEDICATION ADMINISTERED ON 17 AUGUST 2011, DRUG TAKEN FOR 14 DAYS, 2000 MG, 2 IN 1 D
     Route: 065
     Dates: start: 20110817, end: 20110831
  2. DOCETAXEL. [Suspect]
     Active Substance: DOCETAXEL
     Indication: BREAST CANCER
     Dosage: 180 MG, UNK
     Route: 042
  3. DOCETAXEL. [Suspect]
     Active Substance: DOCETAXEL
     Dosage: 25 % DOSE REDUCTION
     Route: 042
     Dates: start: 20110906
  4. FILGRASTIM [Suspect]
     Active Substance: FILGRASTIM
     Indication: BREAST CANCER
     Dosage: DRUG TAKEN FOR 5 DAYS
     Route: 065
     Dates: start: 20110817, end: 20110822
  5. DOCETAXEL. [Suspect]
     Active Substance: DOCETAXEL
     Dosage: 180 MG, LAST DOSE ADMINISTERED IN 16 AUGUST 2011
     Route: 042
     Dates: start: 20110816

REACTIONS (1)
  - Hypersensitivity [Recovered/Resolved]

NARRATIVE: CASE EVENT DATE: 20110823
